FAERS Safety Report 13519289 (Version 1)
Quarter: 2017Q2

REPORT INFORMATION
  Report Type: Spontaneous
  Country: CL (occurrence: CL)
  Receive Date: 20170505
  Receipt Date: 20170505
  Transmission Date: 20170830
  Serious: Yes (Hospitalization, Other)
  Sender: FDA-Public Use
  Company Number: CL-VIIV HEALTHCARE LIMITED-CL2017GSK059762

PATIENT
  Age: 19 Year
  Sex: Male

DRUGS (3)
  1. TRIUMEQ [Suspect]
     Active Substance: ABACAVIR SULFATE\DOLUTEGRAVIR SODIUM\LAMIVUDINE
     Indication: HIV INFECTION
     Dosage: 1 UNK, QD
     Route: 048
     Dates: start: 20170319, end: 20170324
  2. STRIBILD [Suspect]
     Active Substance: COBICISTAT\ELVITEGRAVIR\EMTRICITABINE\TENOFOVIR DISOPROXIL FUMARATE
     Indication: PRODUCT USED FOR UNKNOWN INDICATION
  3. BENZATHINE PENICILLIN [Concomitant]
     Active Substance: PENICILLIN G BENZATHINE
     Indication: SYPHILIS
     Dosage: 2.4 IU, UNK
     Dates: start: 201703, end: 201703

REACTIONS (14)
  - Headache [Unknown]
  - Nausea [Unknown]
  - Hepatitis acute [Unknown]
  - Meningitis [Unknown]
  - Hypersensitivity [Recovered/Resolved]
  - Pruritus [Unknown]
  - Dizziness [Unknown]
  - Erythema [Unknown]
  - Swelling face [Unknown]
  - Rash papular [Unknown]
  - Gait disturbance [Unknown]
  - Pyrexia [Unknown]
  - Hepatitis viral [Unknown]
  - Migraine [Unknown]

NARRATIVE: CASE EVENT DATE: 20170322
